FAERS Safety Report 9614233 (Version 2)
Quarter: 2013Q4

REPORT INFORMATION
  Report Type: Report from Study
  Country: US (occurrence: US)
  Receive Date: 20131011
  Receipt Date: 20131017
  Transmission Date: 20140711
  Serious: Yes (Death, Other)
  Sender: FDA-Public Use
  Company Number: US-ROCHE-1287839

PATIENT
  Sex: Male

DRUGS (3)
  1. XOLAIR [Suspect]
     Indication: PULMONARY FIBROSIS
     Route: 058
  2. XOLAIR [Suspect]
     Indication: CHRONIC RESPIRATORY FAILURE
  3. XOLAIR [Suspect]
     Indication: ASTHMA

REACTIONS (2)
  - Death [Fatal]
  - Cerebrovascular accident [Unknown]
